FAERS Safety Report 17868352 (Version 1)
Quarter: 2020Q2

REPORT INFORMATION
  Report Type: Spontaneous
  Country: CA (occurrence: CA)
  Receive Date: 20200606
  Receipt Date: 20200606
  Transmission Date: 20200714
  Serious: Yes (Hospitalization)
  Sender: FDA-Public Use
  Company Number: CA-ROCHE-2612813

PATIENT
  Sex: Female

DRUGS (7)
  1. LURASIDONE HYDROCHLORIDE. [Suspect]
     Active Substance: LURASIDONE HYDROCHLORIDE
     Indication: AFFECTIVE DISORDER
     Route: 065
  2. CLONAZEPAM. [Suspect]
     Active Substance: CLONAZEPAM
     Indication: PRODUCT USED FOR UNKNOWN INDICATION
     Route: 065
  3. DIMENHYDRINATE. [Suspect]
     Active Substance: DIMENHYDRINATE
     Indication: NAUSEA
     Route: 065
  4. BUPRENORPHINE HYDROCHLORIDE;NALOXONE HYDROCHLORIDE [Suspect]
     Active Substance: BUPRENORPHINE HYDROCHLORIDE\NALOXONE HYDROCHLORIDE
     Indication: PAIN
     Route: 065
  5. BENZTROPINE [BENZATROPINE] [Suspect]
     Active Substance: BENZTROPINE
     Indication: NAUSEA
     Route: 065
  6. BENZTROPINE [BENZATROPINE] [Suspect]
     Active Substance: BENZTROPINE
     Indication: MUSCULOSKELETAL STIFFNESS
     Route: 065
  7. BENZTROPINE [BENZATROPINE] [Suspect]
     Active Substance: BENZTROPINE
     Indication: MUSCLE RIGIDITY

REACTIONS (22)
  - Muscle spasms [Recovered/Resolved]
  - Somnolence [Recovered/Resolved]
  - Apathy [Recovered/Resolved]
  - Headache [Recovered/Resolved]
  - Musculoskeletal stiffness [Recovered/Resolved]
  - Euphoric mood [Recovered/Resolved]
  - Sedation [Recovered/Resolved]
  - Vomiting [Recovered/Resolved]
  - Incorrect route of product administration [Unknown]
  - Anxiety [Recovered/Resolved]
  - Toxicity to various agents [Recovered/Resolved]
  - Dizziness [Recovered/Resolved]
  - Withdrawal syndrome [Recovered/Resolved]
  - Intentional product misuse [Unknown]
  - Lethargy [Recovered/Resolved]
  - Therapeutic response unexpected [Recovered/Resolved]
  - Extra dose administered [Unknown]
  - Chills [Recovered/Resolved]
  - Drug use disorder [Recovered/Resolved]
  - Hyperhidrosis [Recovered/Resolved]
  - Psychomotor retardation [Recovered/Resolved]
  - Urinary retention [Recovered/Resolved]
